FAERS Safety Report 13534172 (Version 4)
Quarter: 2021Q4

REPORT INFORMATION
  Report Type: Spontaneous
  Country: FR (occurrence: FR)
  Receive Date: 20170510
  Receipt Date: 20211104
  Transmission Date: 20220303
  Serious: Yes (Hospitalization, Disabling, Congenital Anomaly, Other)
  Sender: FDA-Public Use
  Company Number: FR-ABBVIE-17P-056-1971520-00

PATIENT
  Sex: Male

DRUGS (7)
  1. VALPROATE SODIUM [Suspect]
     Active Substance: VALPROATE SODIUM
     Indication: Maternal exposure timing unspecified
     Route: 064
  2. VALPROATE SODIUM [Suspect]
     Active Substance: VALPROATE SODIUM
     Route: 064
  3. LEUCOVORIN CALCIUM [Concomitant]
     Active Substance: LEUCOVORIN CALCIUM
     Indication: Product used for unknown indication
     Route: 065
  4. FERROUS SULFATE\FOLIC ACID\GASTRIC MUCIN [Concomitant]
     Active Substance: FERROUS SULFATE\FOLIC ACID\GASTRIC MUCIN
     Indication: Product used for unknown indication
     Route: 065
  5. LEUCOVORIN CALCIUM [Concomitant]
     Active Substance: LEUCOVORIN CALCIUM
     Indication: Product used for unknown indication
     Route: 065
  6. KEPPRA [Concomitant]
     Active Substance: LEVETIRACETAM
     Indication: Product used for unknown indication
     Route: 065
  7. VIMPAT [Concomitant]
     Active Substance: LACOSAMIDE
     Indication: Product used for unknown indication
     Route: 065

REACTIONS (56)
  - Muscle tone disorder [Unknown]
  - Joint laxity [Unknown]
  - Inguinal hernia [Unknown]
  - Scoliosis [Unknown]
  - Lordosis [Unknown]
  - Kyphosis [Unknown]
  - Ear, nose and throat examination abnormal [Unknown]
  - Myopia [Unknown]
  - Astigmatism [Unknown]
  - Knee deformity [Unknown]
  - Grunting [Unknown]
  - Fatigue [Unknown]
  - Pain in extremity [Unknown]
  - Motor dysfunction [Unknown]
  - Balance disorder [Unknown]
  - Coordination abnormal [Unknown]
  - Dyspraxia [Unknown]
  - Dysgraphia [Unknown]
  - Attention deficit hyperactivity disorder [Unknown]
  - Auditory disorder [Unknown]
  - Intestinal obstruction [Unknown]
  - Group B streptococcus neonatal sepsis [Unknown]
  - Foetal anticonvulsant syndrome [Not Recovered/Not Resolved]
  - Tooth hypoplasia [Unknown]
  - Conduction disorder [Unknown]
  - Bundle branch block right [Unknown]
  - Pain in extremity [Unknown]
  - Testicular disorder [Unknown]
  - Arthropathy [Unknown]
  - Knee deformity [Unknown]
  - Dysmorphism [Unknown]
  - Motor dysfunction [Unknown]
  - Urinary tract malformation [Unknown]
  - Tooth hypoplasia [Unknown]
  - Talipes [Unknown]
  - Impaired reasoning [Unknown]
  - Memory impairment [Unknown]
  - Executive dysfunction [Unknown]
  - Nervous system disorder [Unknown]
  - Hypotonia [Unknown]
  - Psychomotor skills impaired [Unknown]
  - Developmental delay [Unknown]
  - Arthralgia [Unknown]
  - Tremor [Unknown]
  - Developmental hip dysplasia [Unknown]
  - Dyspnoea [Unknown]
  - Tachycardia [Unknown]
  - Urinary tract malformation [Unknown]
  - Anxiety [Unknown]
  - Ear disorder [Unknown]
  - Nasal disorder [Unknown]
  - Pharyngeal disorder [Unknown]
  - Atrioventricular block [Unknown]
  - Hypermobility syndrome [Unknown]
  - Talipes [Unknown]
  - Foetal exposure during pregnancy [Unknown]

NARRATIVE: CASE EVENT DATE: 20070501
